FAERS Safety Report 8817913 (Version 1)
Quarter: 2012Q4

REPORT INFORMATION
  Report Type: 
  Country: JP (occurrence: JP)
  Receive Date: 20121004
  Receipt Date: 20121004
  Transmission Date: 20130627
  Serious: Yes (Hospitalization)
  Sender: FDA-Public Use
  Company Number: JP-B.I. PHARMACEUTICALS,INC./RIDGEFIELD-2012-BP-23676NB

PATIENT
  Sex: Male

DRUGS (4)
  1. BI-SIFROL [Suspect]
     Indication: PARKINSON^S DISEASE
     Route: 065
  2. NEODOPASTON [Concomitant]
     Indication: PARKINSON^S DISEASE
     Route: 065
  3. UNKNOWNDRUG (ORAL DRUG OF OSTEOPOROSIS) [Concomitant]
     Indication: OSTEOPOROSIS
     Route: 048
     Dates: end: 201109
  4. UNKNOWNDRUG (INJECTION FOR OSTEOPOROSIS) [Concomitant]
     Indication: OSTEOPOROSIS
     Route: 042

REACTIONS (3)
  - Haemolysis [Unknown]
  - Haemolysis [Unknown]
  - Hallucination [Unknown]
